FAERS Safety Report 21242449 (Version 2)
Quarter: 2022Q3

REPORT INFORMATION
  Report Type: Report from Study
  Country: RO (occurrence: None)
  Receive Date: 20220823
  Receipt Date: 20220905
  Transmission Date: 20221027
  Serious: Yes (Other)
  Sender: FDA-Public Use
  Company Number: 2022A284449

PATIENT
  Age: 4531 Day
  Sex: Female
  Weight: 45 kg

DRUGS (1)
  1. SELUMETINIB [Suspect]
     Active Substance: SELUMETINIB
     Indication: Neurofibromatosis
     Route: 048
     Dates: start: 20220625

REACTIONS (5)
  - Neutropenia [Recovering/Resolving]
  - Leukopenia [Recovering/Resolving]
  - Blood creatine phosphokinase increased [Recovering/Resolving]
  - Weight increased [Recovering/Resolving]
  - Blood creatine phosphokinase MB [Recovering/Resolving]

NARRATIVE: CASE EVENT DATE: 20220809
